FAERS Safety Report 5493398-7 (Version None)
Quarter: 2007Q4

REPORT INFORMATION
  Report Type: 
  Country: None (occurrence: None)
  Receive Date: 20071023
  Receipt Date: 20071011
  Transmission Date: 20080405
  Serious: Yes (Other)
  Sender: FDA-Public Use
  Company Number: US-ELI_LILLY_AND_COMPANY-US200710003145

PATIENT
  Age: 9 Year
  Sex: Male

DRUGS (1)
  1. STRATTERA [Suspect]
     Indication: ATTENTION DEFICIT/HYPERACTIVITY DISORDER

REACTIONS (7)
  - AGGRESSION [None]
  - ANGER [None]
  - ANOREXIA [None]
  - HOMICIDAL IDEATION [None]
  - LOGORRHOEA [None]
  - MOOD SWINGS [None]
  - PANIC ATTACK [None]
